FAERS Safety Report 9280300 (Version 4)
Quarter: 2013Q3

REPORT INFORMATION
  Report Type: Spontaneous
  Country: US (occurrence: US)
  Receive Date: 20130509
  Receipt Date: 20130711
  Transmission Date: 20140515
  Serious: Yes (Death, Hospitalization)
  Sender: FDA-Public Use
  Company Number: US-JNJFOC-20130500924

PATIENT
  Sex: Female
  Weight: 68.49 kg

DRUGS (19)
  1. REMICADE [Suspect]
     Indication: RHEUMATOID ARTHRITIS
     Route: 042
  2. REMICADE [Suspect]
     Indication: RHEUMATOID ARTHRITIS
     Route: 042
  3. REMICADE [Suspect]
     Indication: RHEUMATOID ARTHRITIS
     Dosage: 400 MG
     Route: 042
     Dates: start: 20130409
  4. METRONIDAZOLE [Concomitant]
     Route: 065
  5. FOLIC ACID [Concomitant]
     Route: 065
  6. PREDNISONE [Concomitant]
     Dosage: 5 MG TAPER DOSE
     Route: 065
  7. METHOTREXATE [Concomitant]
     Route: 065
  8. CLONAZEPAM [Concomitant]
     Route: 065
  9. DILTIAZEM [Concomitant]
     Route: 065
  10. TRIAMCINOLONE [Concomitant]
     Route: 065
  11. ARTIFICIAL TEARS NOS [Concomitant]
     Route: 065
  12. SENSIPAR [Concomitant]
     Route: 065
  13. NEOPOLYDEX [Concomitant]
     Route: 065
  14. LOTEMAX [Concomitant]
     Route: 065
  15. VITAMIN D [Concomitant]
     Route: 065
  16. ASPIRIN [Concomitant]
     Route: 065
  17. DIOVAN [Concomitant]
     Route: 065
  18. PLAQUENIL [Concomitant]
     Route: 065
  19. TRAMADOL [Concomitant]
     Route: 065

REACTIONS (3)
  - Death [Fatal]
  - Hospitalisation [Unknown]
  - Hypersensitivity [Unknown]
